FAERS Safety Report 7628321-X (Version None)
Quarter: 2011Q3

REPORT INFORMATION
  Report Type: 
  Country: None (occurrence: None)
  Receive Date: 20110721
  Receipt Date: 20110721
  Transmission Date: 20111222
  Serious: Yes (Death, Hospitalization)
  Sender: FDA-Public Use
  Company Number: None

PATIENT
  Age: 56 Year
  Sex: Male
  Weight: 75.7 kg

DRUGS (1)
  1. RIFAMPIN [Suspect]
     Indication: OSTEOMYELITIS
     Dosage: 600 MG EVERY DAY OTHER
     Route: 050
     Dates: start: 20090601, end: 20090605

REACTIONS (4)
  - RENAL FAILURE [None]
  - ANAEMIA [None]
  - HEPATIC FAILURE [None]
  - CHOLESTASIS [None]
